FAERS Safety Report 8790702 (Version 1)
Quarter: 2012Q4

REPORT INFORMATION
  Report Type: Spontaneous
  Country: US (occurrence: None)
  Receive Date: 20120913
  Receipt Date: 20120913
  Transmission Date: 20130627
  Serious: Yes (Hospitalization)
  Sender: FDA-Public Use
  Company Number: None

PATIENT
  Age: 54 Year
  Sex: Female
  Weight: 99.79 kg

DRUGS (1)
  1. SYNTHROID [Suspect]
     Indication: HYPOTHYROIDISM
     Route: 048

REACTIONS (7)
  - Hyperhidrosis [None]
  - Headache [None]
  - Dizziness [None]
  - Muscle spasms [None]
  - Heart rate irregular [None]
  - Abdominal pain upper [None]
  - Aphagia [None]
